FAERS Safety Report 20933704 (Version 2)
Quarter: 2022Q3

REPORT INFORMATION
  Report Type: Spontaneous
  Country: TR (occurrence: TR)
  Receive Date: 20220608
  Receipt Date: 20220727
  Transmission Date: 20221027
  Serious: Yes (Other)
  Sender: FDA-Public Use
  Company Number: TR-Merck Healthcare KGaA-9325052

PATIENT
  Age: 22 Year
  Sex: Female

DRUGS (1)
  1. MAVENCLAD [Suspect]
     Active Substance: CLADRIBINE
     Indication: Multiple sclerosis
     Dosage: RESTARTED ON 30 MAY 2022
     Dates: start: 20220516

REACTIONS (4)
  - Intracranial pressure increased [Unknown]
  - Vision blurred [Unknown]
  - Headache [Unknown]
  - Excessive ocular convergence [Unknown]

NARRATIVE: CASE EVENT DATE: 20220101
